FAERS Safety Report 17405504 (Version 1)
Quarter: 2020Q1

REPORT INFORMATION
  Report Type: Spontaneous
  Country: US (occurrence: US)
  Receive Date: 20200212
  Receipt Date: 20200212
  Transmission Date: 20200409
  Serious: No
  Sender: FDA-Public Use
  Company Number: US-BIOGEN-2020BI00835226

PATIENT
  Age: 55 Year
  Sex: Female
  Weight: 70.28 kg

DRUGS (5)
  1. GABAPENTIN. [Concomitant]
     Active Substance: GABAPENTIN
     Route: 065
  2. DIAZEPAM. [Concomitant]
     Active Substance: DIAZEPAM
     Dosage: 5 MG FIRST TABLET ABOUT 1 HOUR BEFORE MRI, SECOND TABLET RIGHT BEFORE MRI ORALLY TWICE A DAY FOR ...
     Route: 048
  3. ESTRACE [Concomitant]
     Active Substance: ESTRADIOL
     Route: 048
  4. GABAPENTIN. [Concomitant]
     Active Substance: GABAPENTIN
     Dosage: 300 MG IN THE MORNING AND 600 MG AT NIGHT
     Route: 065
  5. TECFIDERA [Suspect]
     Active Substance: DIMETHYL FUMARATE
     Indication: RELAPSING-REMITTING MULTIPLE SCLEROSIS
     Route: 048
     Dates: start: 20190524, end: 20200102

REACTIONS (3)
  - Multiple sclerosis [Not Recovered/Not Resolved]
  - CSF immunoglobulin increased [Unknown]
  - Lhermitte^s sign [Unknown]

NARRATIVE: CASE EVENT DATE: 201812
